FAERS Safety Report 10528488 (Version 2)
Quarter: 2014Q4

REPORT INFORMATION
  Report Type: Spontaneous
  Country: US (occurrence: US)
  Receive Date: 20141020
  Receipt Date: 20141117
  Transmission Date: 20150528
  Serious: Yes (Hospitalization, Other)
  Sender: FDA-Public Use
  Company Number: US-JNJFOC-20141010178

PATIENT
  Age: 64 Year
  Sex: Female
  Weight: 62 kg

DRUGS (40)
  1. TACROLIMUS. [Concomitant]
     Active Substance: TACROLIMUS
  2. VITAMIN D3 [Concomitant]
     Active Substance: CHOLECALCIFEROL
  3. THERAGRAN-M [Concomitant]
     Active Substance: VITAMINS
     Route: 048
  4. IMBRUVICA [Suspect]
     Active Substance: IBRUTINIB
     Indication: CHRONIC LYMPHOCYTIC LEUKAEMIA
     Route: 048
     Dates: start: 20140604, end: 20140823
  5. MAGNESIUM OXIDE. [Concomitant]
     Active Substance: MAGNESIUM OXIDE
  6. PROMETHAZINE HCL [Concomitant]
     Active Substance: PROMETHAZINE HYDROCHLORIDE
     Indication: VOMITING
     Route: 048
  7. PRILOSEC [Concomitant]
     Active Substance: OMEPRAZOLE MAGNESIUM
  8. LOVENOX [Suspect]
     Active Substance: ENOXAPARIN SODIUM
     Indication: AXILLARY VEIN THROMBOSIS
  9. NORVASC [Concomitant]
     Active Substance: AMLODIPINE BESYLATE
  10. PROMETHAZINE HCL [Concomitant]
     Active Substance: PROMETHAZINE HYDROCHLORIDE
     Indication: VOMITING
     Route: 048
  11. PROMETHAZINE HCL [Concomitant]
     Active Substance: PROMETHAZINE HYDROCHLORIDE
     Indication: NAUSEA
     Route: 048
  12. FLUCONAZOLE. [Concomitant]
     Active Substance: FLUCONAZOLE
     Route: 048
  13. GABAPENTIN. [Concomitant]
     Active Substance: GABAPENTIN
  14. VITAMIN D [Concomitant]
     Active Substance: CHOLECALCIFEROL
  15. VORICONAZOLE. [Concomitant]
     Active Substance: VORICONAZOLE
     Route: 048
  16. WELLBUTRIN [Concomitant]
     Active Substance: BUPROPION HYDROCHLORIDE
  17. SEROQUEL [Concomitant]
     Active Substance: QUETIAPINE FUMARATE
  18. LOMOTIL [Concomitant]
     Active Substance: ATROPINE SULFATE\DIPHENOXYLATE HYDROCHLORIDE
     Indication: DIARRHOEA
     Route: 048
  19. HYDROXYZINE HYDROCHLORIDE. [Concomitant]
     Active Substance: HYDROXYZINE HYDROCHLORIDE
     Indication: PRURITUS
  20. BONIVA [Concomitant]
     Active Substance: IBANDRONATE SODIUM
  21. ACYCLOVIR. [Concomitant]
     Active Substance: ACYCLOVIR
     Route: 048
  22. IMBRUVICA [Suspect]
     Active Substance: IBRUTINIB
     Indication: CHRONIC LYMPHOCYTIC LEUKAEMIA
     Route: 048
     Dates: start: 20140903
  23. IMBRUVICA [Suspect]
     Active Substance: IBRUTINIB
     Indication: CHRONIC LYMPHOCYTIC LEUKAEMIA
     Route: 048
     Dates: start: 20140411, end: 20140603
  24. LAMICTAL [Concomitant]
     Active Substance: LAMOTRIGINE
     Route: 048
  25. PAXIL [Concomitant]
     Active Substance: PAROXETINE HYDROCHLORIDE
  26. PENICILLIN V POTASSIUM. [Concomitant]
     Active Substance: PENICILLIN V POTASSIUM
     Route: 048
  27. PROMETHAZINE HCL [Concomitant]
     Active Substance: PROMETHAZINE HYDROCHLORIDE
     Indication: NAUSEA
     Route: 048
  28. TRIAMCINOLONE ACETONIDE. [Concomitant]
     Active Substance: TRIAMCINOLONE ACETONIDE
     Route: 061
  29. RENA-VITE [Concomitant]
     Active Substance: VITAMINS
  30. MEGACE [Concomitant]
     Active Substance: MEGESTROL ACETATE
     Route: 048
  31. ALPRAZOLAM. [Concomitant]
     Active Substance: ALPRAZOLAM
  32. OXYCODONE [Concomitant]
     Active Substance: OXYCODONE
  33. AMLODIPINE BESILATE [Concomitant]
     Active Substance: AMLODIPINE BESYLATE
  34. EMLA (LIDOCAINE/PRILOCAINE) [Concomitant]
  35. DETROL [Concomitant]
     Active Substance: TOLTERODINE TARTRATE
     Route: 048
  36. CELLCEPT [Concomitant]
     Active Substance: MYCOPHENOLATE MOFETIL\MYCOPHENOLATE MOFETIL HYDROCHLORIDE
     Route: 048
  37. FENTANYL. [Concomitant]
     Active Substance: FENTANYL
     Route: 062
  38. ASPIRIN ENTERIC COATED K.P. [Concomitant]
     Active Substance: ASPIRIN
  39. ZENPEP [Concomitant]
     Active Substance: PANCRELIPASE\PANCRELIPASE AMYLASE\PANCRELIPASE LIPASE\PANCRELIPASE PROTEASE
     Dosage: 2 CAPS PER MEAL 1. 1 CAP PER SNACK
  40. DAPSONE. [Concomitant]
     Active Substance: DAPSONE
     Route: 048

REACTIONS (18)
  - Tooth abscess [Recovered/Resolved]
  - Abdominal pain [Unknown]
  - Klebsiella sepsis [Recovered/Resolved]
  - Pancytopenia [Unknown]
  - Peritoneal haemorrhage [Unknown]
  - Platelet count decreased [Recovered/Resolved]
  - Tooth fracture [Recovered/Resolved]
  - Weight decreased [Unknown]
  - Hernia [Unknown]
  - Deep vein thrombosis [Unknown]
  - Hepatic haematoma [Recovered/Resolved]
  - Cellulitis [Unknown]
  - Mental status changes [Recovered/Resolved]
  - Fatigue [Unknown]
  - Autoimmune haemolytic anaemia [Unknown]
  - Dental caries [Recovered/Resolved]
  - Chest pain [Unknown]
  - Accidental overdose [Recovered/Resolved]

NARRATIVE: CASE EVENT DATE: 20140718
